FAERS Safety Report 6769120-0 (Version None)
Quarter: 2010Q2

REPORT INFORMATION
  Report Type: 
  Country: None (occurrence: None)
  Receive Date: 20100603
  Receipt Date: 20070412
  Transmission Date: 20101027
  Serious: Yes (Death, Life-Threatening, Other)
  Sender: FDA-Public Use
  Company Number: 2007SP006868

PATIENT
  Age: 65 Year
  Sex: Male
  Weight: 65 kg

DRUGS (12)
  1. TEMODAL [Suspect]
     Indication: ANAPLASTIC ASTROCYTOMA
     Dosage: 133 MG/M2; QD;PO; 133 MG/M2;QD;PO; 160 MG/M2;QD;PO; 160 MG/M2;QD;PO; 160 MG/M2;QD;PO
     Route: 048
     Dates: start: 20060923, end: 20060927
  2. TEMODAL [Suspect]
     Indication: ANAPLASTIC ASTROCYTOMA
     Dosage: 133 MG/M2; QD;PO; 133 MG/M2;QD;PO; 160 MG/M2;QD;PO; 160 MG/M2;QD;PO; 160 MG/M2;QD;PO
     Route: 048
     Dates: start: 20061028, end: 20061101
  3. TEMODAL [Suspect]
     Indication: ANAPLASTIC ASTROCYTOMA
     Dosage: 133 MG/M2; QD;PO; 133 MG/M2;QD;PO; 160 MG/M2;QD;PO; 160 MG/M2;QD;PO; 160 MG/M2;QD;PO
     Route: 048
     Dates: start: 20061125, end: 20061129
  4. TEMODAL [Suspect]
     Indication: ANAPLASTIC ASTROCYTOMA
     Dosage: 133 MG/M2; QD;PO; 133 MG/M2;QD;PO; 160 MG/M2;QD;PO; 160 MG/M2;QD;PO; 160 MG/M2;QD;PO
     Route: 048
     Dates: start: 20061223, end: 20061227
  5. TEMODAL [Suspect]
     Indication: ANAPLASTIC ASTROCYTOMA
     Dosage: 133 MG/M2; QD;PO; 133 MG/M2;QD;PO; 160 MG/M2;QD;PO; 160 MG/M2;QD;PO; 160 MG/M2;QD;PO
     Route: 048
     Dates: start: 20070127, end: 20070131
  6. PHENYTOIN [Suspect]
     Indication: EPILEPSY
     Dosage: PO
     Route: 048
     Dates: start: 20060323, end: 20070214
  7. PREDNISOLONE [Suspect]
     Indication: ANAPLASTIC ASTROCYTOMA
     Dosage: PO
     Route: 048
     Dates: start: 20060414, end: 20070214
  8. BENAMBAX (CON.) [Concomitant]
     Indication: DISEASE RECURRENCE
  9. PROMAC (CON.) [Concomitant]
  10. SYMMETREL (CON.) [Concomitant]
  11. LIVALO (CON.) [Concomitant]
  12. ACTOS (CON.) [Concomitant]

REACTIONS (6)
  - BRAIN HERNIATION [None]
  - BRAIN NEOPLASM [None]
  - BRAIN OEDEMA [None]
  - GAMMA-GLUTAMYLTRANSFERASE INCREASED [None]
  - HYPOPHAGIA [None]
  - LYMPHOCYTE COUNT DECREASED [None]
